FAERS Safety Report 15857269 (Version 1)
Quarter: 2019Q1

REPORT INFORMATION
  Report Type: Spontaneous
  Country: US (occurrence: US)
  Receive Date: 20190123
  Receipt Date: 20190123
  Transmission Date: 20190417
  Serious: No
  Sender: FDA-Public Use
  Company Number: US-DRREDDYS-USA/USA/19/0106967

PATIENT
  Age: 44 Year
  Sex: Female
  Weight: 68 kg

DRUGS (1)
  1. NICOTINE. [Suspect]
     Active Substance: NICOTINE
     Indication: PRODUCT USED FOR UNKNOWN INDICATION
     Route: 062
     Dates: start: 201901

REACTIONS (7)
  - Skin irritation [Unknown]
  - Pruritus [Recovering/Resolving]
  - Incorrect product administration duration [Unknown]
  - Erythema [Not Recovered/Not Resolved]
  - Product quality issue [Unknown]
  - Blister [Unknown]
  - Rash [Unknown]
